FAERS Safety Report 6423549-9 (Version None)
Quarter: 2009Q4

REPORT INFORMATION
  Report Type: 
  Country: None (occurrence: None)
  Receive Date: 20091102
  Receipt Date: 20091001
  Transmission Date: 20100525
  Serious: Yes (Other)
  Sender: FDA-Public Use
  Company Number: A0801903A

PATIENT
  Age: 79 Year
  Sex: Female

DRUGS (11)
  1. RYTHMOL SR [Suspect]
     Dosage: 225MG TWICE PER DAY
     Route: 048
  2. SYNTHROID [Concomitant]
  3. PREVACID [Concomitant]
  4. PLAVIX [Concomitant]
  5. SOTALOL [Concomitant]
  6. ASPIRIN [Concomitant]
  7. TYLENOL [Concomitant]
  8. NITROGLYCERIN [Concomitant]
     Route: 062
  9. VITAMIN [Concomitant]
  10. ZINC [Concomitant]
  11. CALCIUM + D [Concomitant]

REACTIONS (6)
  - ARRHYTHMIA [None]
  - BLOOD PRESSURE DECREASED [None]
  - FATIGUE [None]
  - HEART RATE DECREASED [None]
  - HEART RATE INCREASED [None]
  - LOSS OF CONSCIOUSNESS [None]
